FAERS Safety Report 5161154-5 (Version None)
Quarter: 2006Q4

REPORT INFORMATION
  Report Type: 
  Country: None (occurrence: None)
  Receive Date: 20061130
  Receipt Date: 20060302
  Transmission Date: 20070319
  Serious: Yes (Hospitalization, Other)
  Sender: FDA-Public Use
  Company Number: US-ELI_LILLY_AND_COMPANY-US200603002322

PATIENT
  Age: 57 Year
  Sex: Female
  Weight: 126.98 kg

DRUGS (8)
  1. HALOPERIDOL [Concomitant]
     Dates: start: 19940601
  2. CARBAMAZEPINE [Concomitant]
     Dates: start: 19980501
  3. SERTRALINE [Concomitant]
     Dates: start: 20000601
  4. ACEBUTOLOL [Concomitant]
     Dates: start: 20020601
  5. PROPRANOLOL [Concomitant]
     Dates: start: 19950301
  6. ESTROGENS CONJUGATED W/PROGESTERONE [Concomitant]
     Dates: start: 20000501
  7. ZYPREXA [Suspect]
     Dosage: 15 MG, UNK
     Dates: start: 19960901
  8. ZYPREXA [Suspect]
     Dosage: 20 MEQ, UNK
     Dates: end: 20021201

REACTIONS (10)
  - BILIARY TRACT DISORDER [None]
  - BLOOD CHOLESTEROL ABNORMAL [None]
  - CARDIAC FAILURE CONGESTIVE [None]
  - DIABETES MELLITUS NON-INSULIN-DEPENDENT [None]
  - HYPERTENSION [None]
  - METABOLIC DISORDER [None]
  - MYOCARDIAL INFARCTION [None]
  - MYOCARDIAL ISCHAEMIA [None]
  - PULMONARY EMBOLISM [None]
  - THROMBOSIS [None]
